FAERS Safety Report 5878460-9 (Version None)
Quarter: 2008Q3

REPORT INFORMATION
  Report Type: 
  Country: None (occurrence: None)
  Receive Date: 20080911
  Receipt Date: 20070817
  Transmission Date: 20090109
  Serious: No
  Sender: FDA-Public Use
  Company Number: US-AMGEN-US223646

PATIENT
  Sex: Male

DRUGS (3)
  1. NEUPOGEN [Suspect]
     Indication: NEUTROPENIA
     Dates: start: 20070401
  2. INTERFERON [Concomitant]
  3. RIBAVIRIN [Concomitant]

REACTIONS (1)
  - DRUG INEFFECTIVE [None]
